FAERS Safety Report 9539137 (Version 1)
Quarter: 2013Q2

REPORT INFORMATION
  Report Type: Spontaneous
  Country: US (occurrence: None)
  Receive Date: 20130521
  Receipt Date: 20130521
  Transmission Date: 20140414
  Serious: No
  Sender: FDA-Public Use
  Company Number: 1000042983

PATIENT
  Age: 86 Year
  Sex: Female

DRUGS (6)
  1. TUDORZA PRESSAIR (ACLIDINIUM BROMIDE) (400 MICROGRAM, POWDER) [Suspect]
     Indication: CHRONIC OBSTRUCTIVE PULMONARY DISEASE
     Dosage: (400 MCG, 2 IN 1 D) RESPIRATORY
     Route: 055
     Dates: start: 20130222
  2. SINGULAIR [Concomitant]
  3. METOPROLOL [Concomitant]
  4. DIGOXIN [Concomitant]
  5. COUMADIN [Concomitant]
  6. ARMOUR THYROID [Concomitant]

REACTIONS (1)
  - Somnolence [None]
